FAERS Safety Report 6554006-7 (Version None)
Quarter: 2010Q1

REPORT INFORMATION
  Report Type: 
  Country: None (occurrence: None)
  Receive Date: 20100127
  Receipt Date: 20100118
  Transmission Date: 20100710
  Serious: No
  Sender: FDA-Public Use
  Company Number: JP-ABBOTT-09P-087-0611248-00

PATIENT
  Sex: Male
  Weight: 72 kg

DRUGS (18)
  1. SEVOFRANE [Suspect]
     Indication: ANAESTHESIA
     Route: 055
     Dates: start: 20080619, end: 20080619
  2. PROPOFOL [Concomitant]
     Indication: ANAESTHESIA
     Route: 042
     Dates: start: 20080619, end: 20080619
  3. DIAZEPAM [Concomitant]
     Indication: SURGERY
     Route: 048
     Dates: start: 20080619, end: 20080619
  4. CEFAZOLIN SODIUM [Concomitant]
     Indication: SURGERY
     Route: 042
     Dates: start: 20080619, end: 20080621
  5. VECURONIUM BROMIDE [Concomitant]
     Indication: SURGERY
     Route: 042
     Dates: start: 20080619, end: 20080619
  6. FENTANYL [Concomitant]
     Indication: SURGERY
     Route: 042
     Dates: start: 20080619, end: 20080619
  7. ATROPINE SULFATE HYDRATE [Concomitant]
     Indication: SURGERY
     Route: 042
     Dates: start: 20080619, end: 20080619
  8. NEOSTIGMINE [Concomitant]
     Indication: SURGERY
     Route: 042
     Dates: start: 20080619, end: 20080619
  9. THIAMYLAL SODIUM [Concomitant]
     Indication: SURGERY
     Route: 042
     Dates: start: 20080619, end: 20080619
  10. METHYLPREDNISOLONE SODIUM SUCCINATE [Concomitant]
     Indication: SURGERY
     Route: 042
     Dates: start: 20080619, end: 20080623
  11. EPHEDRINE HYDROCHLORIDE [Concomitant]
     Indication: SURGERY
     Route: 042
     Dates: start: 20080619, end: 20080619
  12. DICLOFENAC SODIUM [Concomitant]
     Indication: PROCEDURAL PAIN
     Route: 050
     Dates: start: 20080619, end: 20080619
  13. HYDROXYZINE [Concomitant]
     Indication: DELIRIUM
     Route: 042
     Dates: start: 20080619, end: 20080620
  14. PENTAZOCINE [Concomitant]
     Indication: PROCEDURAL PAIN
     Route: 042
     Dates: start: 20080619, end: 20080620
  15. MELOXICAM [Concomitant]
     Indication: BACK PAIN
     Route: 048
     Dates: start: 20080623, end: 20080717
  16. REBAMIPIDE [Concomitant]
     Indication: GASTRITIS
     Route: 048
     Dates: start: 20080623, end: 20080717
  17. RISPERIDONE [Concomitant]
     Indication: DELUSION
     Dates: start: 20080621, end: 20080723
  18. LOXOPROFEN SODIUM HYDRATE [Concomitant]
     Indication: PROCEDURAL PAIN
     Route: 048
     Dates: start: 20080619, end: 20080628

REACTIONS (1)
  - LIVER DISORDER [None]
